FAERS Safety Report 7214700-1 (Version None)
Quarter: 2011Q1

REPORT INFORMATION
  Report Type: 
  Country: None (occurrence: None)
  Receive Date: 20110107
  Receipt Date: 20091202
  Transmission Date: 20110831
  Serious: No
  Sender: FDA-Public Use
  Company Number: A0832861A

PATIENT
  Age: 53 Year
  Sex: Female

DRUGS (4)
  1. ACETAMINOPHEN [Concomitant]
  2. BYETTA [Concomitant]
  3. LOVAZA [Suspect]
     Dosage: 4CAP PER DAY
     Route: 048
     Dates: start: 20091201
  4. FISH OIL [Concomitant]

REACTIONS (3)
  - ABDOMINAL PAIN UPPER [None]
  - ABDOMINAL DISCOMFORT [None]
  - HEADACHE [None]
